FAERS Safety Report 15230735 (Version 2)
Quarter: 2018Q3

REPORT INFORMATION
  Report Type: Report from Study
  Country: US (occurrence: US)
  Receive Date: 20180802
  Receipt Date: 20180806
  Transmission Date: 20181010
  Serious: No
  Sender: FDA-Public Use
  Company Number: US-SA-2018SA207309

PATIENT
  Age: 79 Year
  Sex: Female

DRUGS (25)
  1. METFORMIN [Concomitant]
     Active Substance: METFORMIN HYDROCHLORIDE
     Indication: TYPE 2 DIABETES MELLITUS
     Dosage: 1000 MG, BID
     Route: 048
     Dates: start: 20130612
  2. VITAMIN B12 [Concomitant]
     Active Substance: CYANOCOBALAMIN
     Indication: ANAEMIA
     Dosage: 1000 UG, BIW
     Route: 048
     Dates: start: 20130225
  3. ALLOPURINOL. [Concomitant]
     Active Substance: ALLOPURINOL
     Indication: GOUT
     Dosage: 100 MG, QD
     Route: 048
     Dates: start: 20170530
  4. BLINDED ALIROCUMAB [Suspect]
     Active Substance: ALIROCUMAB
     Indication: HYPERCHOLESTEROLAEMIA
     Dosage: 1 ML, QOW
     Route: 058
  5. BLINDED FENOFIBRIC ACID [Suspect]
     Active Substance: FENOFIBRIC ACID
     Indication: HYPERCHOLESTEROLAEMIA
     Dosage: 1 ML, QOW
     Route: 058
  6. DIGOXIN. [Concomitant]
     Active Substance: DIGOXIN
     Indication: ARRHYTHMIA
     Dosage: 125 UG, QD
     Route: 048
     Dates: start: 20101113
  7. EQUATE STOOL SOFTENER [Concomitant]
     Active Substance: CASANTHRANOL\DOCUSATE SODIUM
     Indication: CONSTIPATION
     Dosage: 100 MG, PRN
     Route: 048
     Dates: start: 201612
  8. ONDANSETRON [Concomitant]
     Active Substance: ONDANSETRON
     Indication: INFLUENZA
     Dosage: 8 MG, PRN
     Route: 048
     Dates: start: 20180427
  9. BLINDED ALIROCUMAB [Suspect]
     Active Substance: ALIROCUMAB
     Indication: HYPERCHOLESTEROLAEMIA
     Dosage: 1 ML, QOW
     Route: 058
  10. AMLODIPINE BESYLATE. [Concomitant]
     Active Substance: AMLODIPINE BESYLATE
     Indication: HYPERTENSION
     Dosage: 5 MG, QD
     Route: 048
     Dates: start: 20140411
  11. CALCIUM + D3 [CALCIUM;COLECALCIFEROL] [Concomitant]
     Indication: SUPPLEMENTATION THERAPY
     Dosage: 600 MG, BID
     Route: 048
     Dates: start: 2002
  12. PRAVASTATIN SODIUM. [Suspect]
     Active Substance: PRAVASTATIN SODIUM
     Indication: HYPERCHOLESTEROLAEMIA
     Dosage: 40 MG, QD
     Route: 048
     Dates: start: 201612
  13. BLINDED RED YEAST RICE [Suspect]
     Active Substance: DIETARY SUPPLEMENT
     Indication: HYPERCHOLESTEROLAEMIA
     Dosage: 1 ML, QOW
     Route: 058
  14. VITAMIN D3 [Concomitant]
     Active Substance: CHOLECALCIFEROL
     Indication: SUPPLEMENTATION THERAPY
     Dosage: 1000 MG, BID
     Route: 048
     Dates: start: 20090202
  15. DULCOLAX BALANCE [Concomitant]
     Active Substance: POLYETHYLENE GLYCOL 3350
     Indication: CONSTIPATION
     Dosage: 1 DF, PRN
     Route: 048
     Dates: start: 201612
  16. TRESIBA [Concomitant]
     Active Substance: INSULIN DEGLUDEC
     Indication: TYPE 2 DIABETES MELLITUS
     Dosage: 70 U, QD
     Route: 058
     Dates: start: 20180101
  17. BLINDED NO STUDY DRUG GIVEN [Suspect]
     Active Substance: INVESTIGATIONAL PRODUCT
     Indication: HYPERCHOLESTEROLAEMIA
     Dosage: 1 ML, QOW
     Route: 058
  18. BLINDED PLACEBO [Suspect]
     Active Substance: INVESTIGATIONAL PRODUCT
     Indication: HYPERCHOLESTEROLAEMIA
     Dosage: 1 ML, QOW
     Route: 058
  19. ALIROCUMAB PREFILLED PEN [Suspect]
     Active Substance: ALIROCUMAB
     Indication: HYPERCHOLESTEROLAEMIA
     Dosage: 1 ML, QOW
     Route: 058
  20. DILTIAZEM. [Concomitant]
     Active Substance: DILTIAZEM
     Indication: HYPERTENSION
     Dosage: 360 MG, QD
     Route: 048
     Dates: start: 20031202
  21. TUMS 500 CALCIUM [Concomitant]
     Indication: DYSPEPSIA
     Dosage: 1 DF, PRN
     Route: 048
     Dates: start: 2005
  22. BLINDED ALIROCUMAB [Suspect]
     Active Substance: ALIROCUMAB
     Indication: HYPERCHOLESTEROLAEMIA
     Dosage: 1 ML, QOW
     Route: 058
  23. FISH OIL [Suspect]
     Active Substance: FISH OIL
     Indication: HYPERCHOLESTEROLAEMIA
     Dosage: 1000 MG, BID
     Route: 048
     Dates: start: 20080512
  24. TRIAMTERENE. [Concomitant]
     Active Substance: TRIAMTERENE
     Indication: HYPERTENSION
     Dosage: 37.5?25 UG, QD
     Route: 048
     Dates: start: 20140812
  25. COMBIGAN [Concomitant]
     Active Substance: BRIMONIDINE TARTRATE\TIMOLOL MALEATE
     Indication: GLAUCOMA
     Dosage: 1 DROP, BID
     Route: 061
     Dates: start: 20180102

REACTIONS (1)
  - Respiratory tract infection [Recovered/Resolved]

NARRATIVE: CASE EVENT DATE: 20180703
